FAERS Safety Report 4628250-X (Version None)
Quarter: 2005Q2

REPORT INFORMATION
  Report Type: 
  Country: None (occurrence: None)
  Receive Date: 20050401
  Receipt Date: 20050321
  Transmission Date: 20051028
  Serious: Yes (Life-Threatening, Other)
  Sender: FDA-Public Use
  Company Number: 200510179BCC

PATIENT
  Age: 40 Year
  Sex: Male
  Weight: 120.2032 kg

DRUGS (4)
  1. ORIGINAL ALKA-SELTZER TABLETS [Suspect]
     Indication: NASOPHARYNGITIS
     Dosage: 650 MG, ONCE, ORAL
     Route: 048
  2. THEO-DUR [Concomitant]
  3. FIORINAL W/CODEINE [Concomitant]
  4. PREDNISONE [Concomitant]

REACTIONS (4)
  - ASTHMA [None]
  - CONTRAINDICATION TO MEDICAL TREATMENT [None]
  - RESPIRATORY ARREST [None]
  - RESPIRATORY DISTRESS [None]
